FAERS Safety Report 9575276 (Version 2)
Quarter: 2014Q3

REPORT INFORMATION
  Report Type: Spontaneous
  Country: US (occurrence: US)
  Receive Date: 20131001
  Receipt Date: 20140716
  Transmission Date: 20150326
  Serious: Yes (Hospitalization, Other)
  Sender: FDA-Public Use
  Company Number: US-009507513-1310USA000607

PATIENT
  Sex: Female

DRUGS (1)
  1. NUVARING [Suspect]
     Active Substance: ETHINYL ESTRADIOL\ETONOGESTREL
     Indication: CONTRACEPTION
     Route: 067

REACTIONS (13)
  - Intervertebral disc disorder [Unknown]
  - Gastrooesophageal reflux disease [Unknown]
  - Pulmonary embolism [Unknown]
  - Surgery [Unknown]
  - Arthralgia [Recovered/Resolved]
  - Hypertension [Unknown]
  - Gilbert^s syndrome [Unknown]
  - Paraesthesia [Not Recovered/Not Resolved]
  - Drug hypersensitivity [Unknown]
  - Weight increased [Unknown]
  - Joint swelling [Recovered/Resolved]
  - Eczema [Recovered/Resolved]
  - Chest pain [Unknown]

NARRATIVE: CASE EVENT DATE: 20081001
